FAERS Safety Report 10333891 (Version 2)
Quarter: 2014Q3

REPORT INFORMATION
  Report Type: Spontaneous
  Country: FR (occurrence: FR)
  Receive Date: 20140723
  Receipt Date: 20140821
  Transmission Date: 20150326
  Serious: Yes (Hospitalization)
  Sender: FDA-Public Use
  Company Number: FR-BIOGENIDEC-2014BI071183

PATIENT
  Sex: Female

DRUGS (1)
  1. TECFIDERA [Suspect]
     Active Substance: DIMETHYL FUMARATE
     Indication: RELAPSING-REMITTING MULTIPLE SCLEROSIS
     Route: 048
     Dates: start: 20140620

REACTIONS (9)
  - Fatigue [Unknown]
  - Generalised erythema [Recovered/Resolved]
  - Lip swelling [Unknown]
  - Hot flush [Unknown]
  - Pruritus [Unknown]
  - Choking sensation [Unknown]
  - Nausea [Unknown]
  - Headache [Unknown]
  - Hypoaesthesia [Unknown]

NARRATIVE: CASE EVENT DATE: 20140620
